FAERS Safety Report 19056083 (Version 1)
Quarter: 2021Q1

REPORT INFORMATION
  Report Type: Spontaneous
  Country: US (occurrence: US)
  Receive Date: 20210324
  Receipt Date: 20210324
  Transmission Date: 20210420
  Serious: Yes (Hospitalization)
  Sender: FDA-Public Use
  Company Number: None

PATIENT
  Age: 59 Year
  Sex: Male
  Weight: 96.9 kg

DRUGS (1)
  1. CLEVIPREX [Suspect]
     Active Substance: CLEVIDIPINE
     Indication: POSTOPERATIVE HYPERTENSION
     Route: 041
     Dates: start: 20201203, end: 20201204

REACTIONS (1)
  - Hypoxia [None]

NARRATIVE: CASE EVENT DATE: 20201204
